FAERS Safety Report 12647655 (Version 3)
Quarter: 2016Q3

REPORT INFORMATION
  Report Type: Report from Study
  Country: MX (occurrence: MX)
  Receive Date: 20160812
  Receipt Date: 20160915
  Transmission Date: 20161109
  Serious: Yes (Death, Other)
  Sender: FDA-Public Use
  Company Number: PHHY2015MX160249

PATIENT
  Sex: Male

DRUGS (4)
  1. ONBREZ BREEZHALER [Suspect]
     Active Substance: INDACATEROL
     Indication: CHRONIC OBSTRUCTIVE PULMONARY DISEASE
     Dosage: 2 DF, BID (1 IN THE MORNING AND 1 AT NIGHT)
     Route: 055
  2. ONBREZ BREEZHALER [Suspect]
     Active Substance: INDACATEROL
     Dosage: 300 MG, QD
     Route: 065
  3. ULTIBRO BREEZHALER [Suspect]
     Active Substance: GLYCOPYRRONIUM\INDACATEROL
     Indication: PULMONARY FUNCTION TEST DECREASED
     Dosage: 2 DF, QD
     Route: 065
  4. ONBREZ BREEZHALER [Suspect]
     Active Substance: INDACATEROL
     Indication: EMPHYSEMA
     Dosage: 2 DF (300 MG), BID (1 IN THE MORNING AND 1 AT NIGHT)
     Route: 055

REACTIONS (11)
  - Pulmonary mass [Fatal]
  - Product use issue [Not Recovered/Not Resolved]
  - Arthralgia [Unknown]
  - Pain in extremity [Unknown]
  - Musculoskeletal pain [Unknown]
  - Drug prescribing error [Unknown]
  - Glaucoma [Unknown]
  - Quality of life decreased [Unknown]
  - Lung neoplasm malignant [Fatal]
  - Lung infection [Unknown]
  - Dyspnoea [Unknown]
